FAERS Safety Report 24591809 (Version 1)
Quarter: 2024Q4

REPORT INFORMATION
  Report Type: Spontaneous
  Country: AU (occurrence: None)
  Receive Date: 20241108
  Receipt Date: 20241108
  Transmission Date: 20250115
  Serious: Yes (Other)
  Sender: MDD OPERATIONS
  Company Number: AU-MDD US Operations-MDD202411-004148

PATIENT
  Age: 80 Year
  Sex: Female

DRUGS (1)
  1. APOMORPHINE HYDROCHLORIDE [Suspect]
     Active Substance: APOMORPHINE HYDROCHLORIDE
     Indication: Product used for unknown indication
     Dosage: 50MG/10ML
     Route: 058

REACTIONS (4)
  - Depressed level of consciousness [Unknown]
  - Pain [Unknown]
  - Constipation [Unknown]
  - Vomiting [Unknown]
